FAERS Safety Report 26069590 (Version 1)
Quarter: 2025Q4

REPORT INFORMATION
  Report Type: Spontaneous
  Country: EU (occurrence: EU)
  Receive Date: 20251120
  Receipt Date: 20251120
  Transmission Date: 20260118
  Serious: Yes (Hospitalization)
  Sender: MYLAN
  Company Number: EU-MYLANLABS-2025M1098569

PATIENT
  Age: 23 Year
  Sex: Female

DRUGS (5)
  1. LEVETIRACETAM [Suspect]
     Active Substance: LEVETIRACETAM
     Indication: Febrile infection-related epilepsy syndrome
     Dosage: UNK
  2. IBUPROFEN [Suspect]
     Active Substance: IBUPROFEN
     Indication: Product used for unknown indication
     Dosage: UNK
  3. LACOSAMIDE [Suspect]
     Active Substance: LACOSAMIDE
     Indication: Febrile infection-related epilepsy syndrome
     Dosage: UNK
  4. DIPHENHYDRAMINE [Suspect]
     Active Substance: DIPHENHYDRAMINE
     Indication: Product used for unknown indication
     Dosage: UNK
  5. MIDAZOLAM [Suspect]
     Active Substance: MIDAZOLAM
     Indication: Febrile infection-related epilepsy syndrome
     Dosage: UNK

REACTIONS (4)
  - Toxicity to various agents [Recovered/Resolved]
  - Febrile infection-related epilepsy syndrome [Recovered/Resolved]
  - Suspected suicide attempt [Recovered/Resolved]
  - Drug ineffective [Unknown]
